FAERS Safety Report 6930454-8 (Version None)
Quarter: 2010Q3

REPORT INFORMATION
  Report Type: 
  Country: None (occurrence: None)
  Receive Date: 20100818
  Receipt Date: 20100811
  Transmission Date: 20110219
  Serious: Yes (Other)
  Sender: FDA-Public Use
  Company Number: A0743573A

PATIENT
  Sex: Male

DRUGS (1)
  1. AVANDIA [Suspect]
     Indication: BLOOD GLUCOSE INCREASED
     Dosage: 8MG PER DAY
     Route: 048
     Dates: start: 20060601, end: 20070601

REACTIONS (2)
  - CARDIAC FAILURE [None]
  - HEART INJURY [None]
